FAERS Safety Report 4454348-5 (Version None)
Quarter: 2004Q3

REPORT INFORMATION
  Report Type: 
  Country: None (occurrence: None)
  Receive Date: 20040917
  Receipt Date: 20040917
  Transmission Date: 20050211
  Serious: Yes (Life-Threatening)
  Sender: FDA-Public Use
  Company Number: None

PATIENT
  Age: 69 Year
  Sex: Male
  Weight: 131.9967 kg

DRUGS (6)
  1. ACTOS [Suspect]
     Indication: HYPOGLYCAEMIA
     Dosage: 15 MG PO QD
     Route: 048
     Dates: start: 20030129
  2. XENICAL [Concomitant]
  3. LOPID [Concomitant]
  4. ANAPROX DS [Concomitant]
  5. TYLENOL CAPS [Concomitant]
  6. ACTOS [Concomitant]

REACTIONS (3)
  - BLOOD GLUCOSE DECREASED [None]
  - PHARMACEUTICAL PRODUCT COMPLAINT [None]
  - ROAD TRAFFIC ACCIDENT [None]
